FAERS Safety Report 15883296 (Version 3)
Quarter: 2019Q1

REPORT INFORMATION
  Report Type: Spontaneous
  Country: DE (occurrence: DE)
  Receive Date: 20190129
  Receipt Date: 20190223
  Transmission Date: 20190417
  Serious: Yes (Life-Threatening, Hospitalization)
  Sender: FDA-Public Use
  Company Number: DE-ACCORD-103666

PATIENT
  Age: 21 Year
  Sex: Male

DRUGS (12)
  1. NALOXONE HYDROCHLORIDE/TILIDINE HYDROCHLORIDE [Concomitant]
  2. ESOMEPRAZOLE/ESOMEPRAZOLE MAGNESIUM/ESOMEPRAZOLE SODIUM [Interacting]
     Active Substance: ESOMEPRAZOLE
     Indication: PRODUCT USED FOR UNKNOWN INDICATION
  3. BACLOFEN. [Concomitant]
     Active Substance: BACLOFEN
  4. LORAZEPAM. [Concomitant]
     Active Substance: LORAZEPAM
     Dosage: DAILY DOSE: 1 MG MILLGRAM(S) EVERY DAYS
  5. LEVETIRACETAM. [Concomitant]
     Active Substance: LEVETIRACETAM
     Dosage: DAILY DOSE: 2 DF DOSAGE FORM EVERY DAYS
  6. IVABRADINE/IVABRADINE HYDROCHLORIDE [Concomitant]
     Dosage: DAILY DOSE: 15 MG MILLGRAM(S) EVERY DAYS
  7. SULFAMETHOXAZOLE/TRIMETHOPRIM [Concomitant]
     Dosage: DAILY DOSE: 2 DF DOSAGE FORM EVERY DAYS
     Route: 042
     Dates: start: 20180315, end: 20180319
  8. PREDNISOLONE. [Concomitant]
     Active Substance: PREDNISOLONE
     Dosage: STRENGTH: 10 MG MILLIGRAM(S)
  9. L-THYROXIN [Concomitant]
     Active Substance: LEVOTHYROXINE SODIUM
  10. ESCITALOPRAM [Suspect]
     Active Substance: ESCITALOPRAM OXALATE
     Indication: PRODUCT USED FOR UNKNOWN INDICATION
     Dosage: STRENGTH: 5 MG MILLIGRAM(S)
  11. LINEZOLID. [Interacting]
     Active Substance: LINEZOLID
     Indication: PNEUMONIA STAPHYLOCOCCAL
     Dosage: DAILY DOSE: 2 DF DOSAGE FORM EVERY DAYS
     Route: 042
     Dates: start: 20180315, end: 20180318
  12. SCOPOLAMIN [Concomitant]
     Active Substance: SCOPOLAMINE

REACTIONS (4)
  - Drug interaction [Unknown]
  - Body temperature increased [Not Recovered/Not Resolved]
  - Status epilepticus [Not Recovered/Not Resolved]
  - Serotonin syndrome [Not Recovered/Not Resolved]

NARRATIVE: CASE EVENT DATE: 20180317
